FAERS Safety Report 24835203 (Version 2)
Quarter: 2025Q3

REPORT INFORMATION
  Report Type: Report from Study
  Country: EU (occurrence: EU)
  Receive Date: 20250113
  Receipt Date: 20250803
  Transmission Date: 20251020
  Serious: Yes (Hospitalization, Other)
  Sender: ALEXION PHARMACEUTICALS
  Company Number: EU-AstraZeneca-CH-00780762A

PATIENT
  Age: 75 Year
  Sex: Female

DRUGS (2)
  1. TEZEPELUMAB [Suspect]
     Active Substance: TEZEPELUMAB
     Indication: Asthma
     Dosage: UNK, Q4W
  2. TEZEPELUMAB [Suspect]
     Active Substance: TEZEPELUMAB

REACTIONS (1)
  - Pulmonary oedema [Not Recovered/Not Resolved]

NARRATIVE: CASE EVENT DATE: 20250102
